FAERS Safety Report 5997326-7 (Version None)
Quarter: 2008Q4

REPORT INFORMATION
  Report Type: 
  Country: None (occurrence: None)
  Receive Date: 20081212
  Receipt Date: 20081107
  Transmission Date: 20090506
  Serious: No
  Sender: FDA-Public Use
  Company Number: US-ABBOTT-08P-163-0487014-00

PATIENT
  Sex: Female

DRUGS (5)
  1. HUMIRA [Suspect]
     Indication: RHEUMATOID ARTHRITIS
     Route: 058
     Dates: start: 20040914, end: 20070801
  2. HUMIRA [Suspect]
     Route: 058
     Dates: start: 20080801
  3. METHOTREXATE [Concomitant]
     Indication: RHEUMATOID ARTHRITIS
  4. PLACQUNIL. [Concomitant]
     Indication: RHEUMATOID ARTHRITIS
     Route: 048
  5. GOLD [Concomitant]
     Indication: RHEUMATOID ARTHRITIS
     Route: 050

REACTIONS (1)
  - HERPES VIRUS INFECTION [None]
